FAERS Safety Report 5465716-7 (Version None)
Quarter: 2007Q3

REPORT INFORMATION
  Report Type: 
  Country: None (occurrence: None)
  Receive Date: 20070924
  Receipt Date: 20070911
  Transmission Date: 20080115
  Serious: Yes (Hospitalization)
  Sender: FDA-Public Use
  Company Number: IT-MERCK-0709ITA00015

PATIENT
  Age: 38 Year
  Sex: Female

DRUGS (4)
  1. CRIXIVAN [Suspect]
     Indication: HIV INFECTION
     Route: 048
  2. CRIXIVAN [Suspect]
     Route: 048
  3. RITONAVIR [Suspect]
     Indication: HIV INFECTION
     Route: 048
  4. LOPINAVIR [Suspect]
     Indication: HIV INFECTION
     Route: 048

REACTIONS (8)
  - BACTERIAL TOXAEMIA [None]
  - DRUG RESISTANCE [None]
  - HYPERPYREXIA [None]
  - HYPERSENSITIVITY [None]
  - OESOPHAGEAL CANDIDIASIS [None]
  - RENAL COLIC [None]
  - STEVENS-JOHNSON SYNDROME [None]
  - WEIGHT DECREASED [None]
